FAERS Safety Report 9453149 (Version 1)
Quarter: 2013Q3

REPORT INFORMATION
  Report Type: Report from Study
  Country: CA (occurrence: CA)
  Receive Date: 20130812
  Receipt Date: 20130812
  Transmission Date: 20140515
  Serious: Yes (Other)
  Sender: FDA-Public Use
  Company Number: PHHY2013CA086368

PATIENT
  Age: 55 Year
  Sex: Female

DRUGS (5)
  1. DIOVAN HCT [Suspect]
     Dosage: UNK UKN, UNK
     Route: 048
  2. PREDNISONE [Concomitant]
     Dosage: 30 MG, QD
  3. ADVAIR [Concomitant]
     Dosage: 2 DF, (500 MDI) BID
  4. VENTOLINE [Concomitant]
     Dosage: 2 DF, PRN
  5. SINGULAIR [Concomitant]
     Dosage: 1 DF, QD
     Route: 048

REACTIONS (1)
  - Ankle fracture [Unknown]
